FAERS Safety Report 7362348-0 (Version None)
Quarter: 2011Q1

REPORT INFORMATION
  Report Type: 
  Country: None (occurrence: None)
  Receive Date: 20110318
  Receipt Date: 20110309
  Transmission Date: 20110831
  Serious: Yes (Hospitalization)
  Sender: FDA-Public Use
  Company Number: ZA-B.I. PHARMACEUTICALS,INC./RIDGEFIELD-2011-BP-05112BP

PATIENT

DRUGS (3)
  1. AZT [Suspect]
     Indication: HIV INFECTION
  2. VIRAMUNE [Suspect]
     Indication: HIV INFECTION
     Dates: start: 20071120, end: 20071224
  3. LAMIVUDINE (EPIVIR HBV) [Suspect]
     Indication: HIV INFECTION

REACTIONS (2)
  - BRONCHOPNEUMONIA [None]
  - PNEUMONIA [None]
